FAERS Safety Report 20578720 (Version 1)
Quarter: 2022Q1

REPORT INFORMATION
  Report Type: Spontaneous
  Country: US (occurrence: None)
  Receive Date: 20220310
  Receipt Date: 20220310
  Transmission Date: 20220423
  Serious: Yes (Hospitalization)
  Sender: FDA-Public Use
  Company Number: None

PATIENT
  Age: 74 Year
  Sex: Male
  Weight: 104 kg

DRUGS (1)
  1. PROPRANOLOL HYDROCHLORIDE [Suspect]
     Active Substance: PROPRANOLOL HYDROCHLORIDE
     Indication: Tremor
     Dosage: FREQUENCY : TWICE A DAY;?
     Route: 048
     Dates: start: 20200724, end: 20210108

REACTIONS (4)
  - Cerebrovascular accident [None]
  - Atrioventricular block second degree [None]
  - Bradycardia [None]
  - Therapy cessation [None]

NARRATIVE: CASE EVENT DATE: 20210108
